FAERS Safety Report 6783353-9 (Version None)
Quarter: 2010Q2

REPORT INFORMATION
  Report Type: 
  Country: None (occurrence: None)
  Receive Date: 20100622
  Receipt Date: 20100617
  Transmission Date: 20101027
  Serious: Yes (Hospitalization, Other)
  Sender: FDA-Public Use
  Company Number: FR-KINGPHARMUSA00001-K201000760

PATIENT
  Age: 65 Year
  Sex: Female

DRUGS (7)
  1. ALTACE [Suspect]
     Indication: HYPERTENSION
     Dosage: 5 MG, QD
     Route: 048
     Dates: start: 20070107
  2. KANRENOL [Suspect]
     Indication: HYPERTENSION
     Dosage: 100 MG, QD
     Route: 048
     Dates: start: 20070101, end: 20100421
  3. DILATREND [Suspect]
     Indication: ISCHAEMIC CARDIOMYOPATHY
     Dosage: 6.25 MG, QD
     Route: 048
     Dates: start: 20070101
  4. CLOPIDOGREL BISULFATE [Concomitant]
     Indication: ISCHAEMIC CARDIOMYOPATHY
     Dosage: UNK
     Dates: start: 20070101
  5. LASIX [Concomitant]
     Indication: HYPERTENSION
     Dosage: UNK
     Dates: start: 20070101
  6. ASPIRIN [Concomitant]
     Indication: THROMBOSIS PROPHYLAXIS
     Dosage: UNK
     Dates: start: 20070101
  7. NOVOMIX [Concomitant]
     Indication: TYPE 2 DIABETES MELLITUS

REACTIONS (5)
  - ACUTE MYOCARDIAL INFARCTION [None]
  - ASTHENIA [None]
  - HYPERKALAEMIA [None]
  - HYPOTENSION [None]
  - VISION BLURRED [None]
